FAERS Safety Report 19599060 (Version 1)
Quarter: 2021Q3

REPORT INFORMATION
  Report Type: Spontaneous
  Country: US (occurrence: US)
  Receive Date: 20210723
  Receipt Date: 20210723
  Transmission Date: 20211014
  Serious: Yes (Life-Threatening)
  Sender: FDA-Public Use
  Company Number: None

PATIENT
  Age: 62 Year
  Sex: Female
  Weight: 53.55 kg

DRUGS (1)
  1. SACITUZUMAB GOVITECAN. [Suspect]
     Active Substance: SACITUZUMAB GOVITECAN
     Indication: TRANSITIONAL CELL CANCER OF RENAL PELVIS AND URETER METASTATIC
     Dosage: ?          OTHER FREQUENCY:DAY 1, 8 Q 21D;?
     Route: 041
     Dates: start: 20210505, end: 20210628

REACTIONS (3)
  - Tongue movement disturbance [None]
  - Disease progression [None]
  - Dysphagia [None]

NARRATIVE: CASE EVENT DATE: 20210626
